FAERS Safety Report 6179854-7 (Version None)
Quarter: 2009Q2

REPORT INFORMATION
  Report Type: 
  Country: None (occurrence: None)
  Receive Date: 20090505
  Receipt Date: 20090417
  Transmission Date: 20091009
  Serious: No
  Sender: FDA-Public Use
  Company Number: IT-ALEXION-A200800400

PATIENT

DRUGS (4)
  1. SOLIRIS [Suspect]
     Indication: PAROXYSMAL NOCTURNAL HAEMOGLOBINURIA
     Dosage: UNK, UNK
     Route: 042
     Dates: start: 20080730
  2. SOLIRIS [Suspect]
     Dosage: 900 MG, UNK
     Route: 042
  3. SINTROM [Concomitant]
  4. MEDROL [Concomitant]

REACTIONS (2)
  - HEADACHE [None]
  - RASH [None]
